FAERS Safety Report 8881253 (Version 2)
Quarter: 2012Q4

REPORT INFORMATION
  Report Type: 
  Country: US (occurrence: US)
  Receive Date: 20121031
  Receipt Date: 20121214
  Transmission Date: 20130627
  Serious: Yes (Other)
  Sender: FDA-Public Use
  Company Number: US-PERRIGO-12US009276

PATIENT
  Age: 42 Year
  Sex: Female
  Weight: 61.22 kg

DRUGS (1)
  1. MINOXIDIL 2%  WOMEN 202 [Suspect]
     Indication: ALOPECIA
     Dosage: 1 ml, bid
     Route: 061
     Dates: start: 20110601, end: 20121022

REACTIONS (1)
  - Convulsion [Recovered/Resolved]
